FAERS Safety Report 8884334 (Version 2)
Quarter: 2012Q4

REPORT INFORMATION
  Report Type: 
  Country: US (occurrence: US)
  Receive Date: 20121102
  Receipt Date: 20121105
  Transmission Date: 20130627
  Serious: Yes (Other)
  Sender: FDA-Public Use
  Company Number: PHEH2012US021258

PATIENT
  Age: 59 Year
  Sex: Male

DRUGS (3)
  1. GILENYA [Suspect]
     Indication: MULTIPLE SCLEROSIS
     Dosage: 0.5 mg, daily
     Route: 048
     Dates: start: 20121029
  2. CALCIUM CHANNEL BLOCKERS [Concomitant]
  3. THYROID [Suspect]
     Route: 048

REACTIONS (3)
  - Electrocardiogram QT prolonged [Recovered/Resolved]
  - Heart rate decreased [Recovered/Resolved]
  - ECG signs of myocardial ischaemia [Recovered/Resolved]
